FAERS Safety Report 9829303 (Version 1)
Quarter: 2014Q1

REPORT INFORMATION
  Report Type: Spontaneous
  Country: US (occurrence: US)
  Receive Date: 20140120
  Receipt Date: 20140120
  Transmission Date: 20141002
  Serious: No
  Sender: FDA-Public Use
  Company Number: US-009507513-1401USA005665

PATIENT
  Sex: Male

DRUGS (2)
  1. COSOPT [Suspect]
     Indication: INTRAOCULAR PRESSURE TEST ABNORMAL
     Dosage: TAKEN TWICE DAILY
     Route: 047
  2. ALPHAGAN [Concomitant]

REACTIONS (1)
  - Burning sensation [Unknown]
